FAERS Safety Report 5731928-8 (Version None)
Quarter: 2008Q2

REPORT INFORMATION
  Report Type: 
  Country: None (occurrence: None)
  Receive Date: 20080508
  Receipt Date: 20080428
  Transmission Date: 20081010
  Serious: Yes (Disabling, Other)
  Sender: FDA-Public Use
  Company Number: DE-MERCK-0801DEU00077

PATIENT
  Age: 68 Year
  Sex: Female

DRUGS (9)
  1. FOSAMAX [Suspect]
     Indication: OSTEOPOROSIS
     Route: 048
     Dates: start: 19970301, end: 19991001
  2. FOSAMAX [Suspect]
     Route: 048
     Dates: start: 20020201, end: 20050401
  3. FOSAMAX [Suspect]
     Indication: LUMBAR VERTEBRAL FRACTURE
     Route: 048
     Dates: start: 19970301, end: 19991001
  4. FOSAMAX [Suspect]
     Route: 048
     Dates: start: 20020201, end: 20050401
  5. DICLOFENAC SODIUM [Concomitant]
     Route: 065
  6. MELOXICAM [Concomitant]
     Route: 065
  7. IBUPROFEN [Concomitant]
     Route: 065
  8. NALOXONE HYDROCHLORIDE AND TILIDINE HYDROCHLORIDE [Concomitant]
     Route: 065
  9. CHOLECALCIFEROL [Concomitant]
     Indication: OSTEOPOROSIS
     Route: 048
     Dates: end: 20050201

REACTIONS (3)
  - ATROPHY [None]
  - HYPERCHOLESTEROLAEMIA [None]
  - PERIPHERAL ARTERIAL OCCLUSIVE DISEASE [None]
